FAERS Safety Report 4906319-X (Version None)
Quarter: 2006Q1

REPORT INFORMATION
  Report Type: 
  Country: None (occurrence: None)
  Receive Date: 20060209
  Receipt Date: 20031230
  Transmission Date: 20060701
  Serious: Yes (Hospitalization)
  Sender: FDA-Public Use
  Company Number: FR-AVENTIS-200314939FR

PATIENT
  Age: 5 Year
  Sex: Male

DRUGS (2)
  1. FLAGYL [Suspect]
     Indication: CLOSTRIDIUM COLITIS
     Route: 048
     Dates: start: 20030718, end: 20030728
  2. TIORFAN [Suspect]
     Indication: CLOSTRIDIUM COLITIS
     Route: 048
     Dates: start: 20030718, end: 20030728

REACTIONS (3)
  - ERYTHEMA MULTIFORME [None]
  - PRURITUS [None]
  - RASH [None]
